FAERS Safety Report 8633629 (Version 2)
Quarter: 2012Q4

REPORT INFORMATION
  Report Type: 
  Country: GB (occurrence: GB)
  Receive Date: 20120625
  Receipt Date: 20120918
  Transmission Date: 20130627
  Serious: Yes (Death, Life-Threatening, Other)
  Sender: FDA-Public Use
  Company Number: GB-ELI_LILLY_AND_COMPANY-GB201206007295

PATIENT
  Age: 69 Year
  Sex: Female

DRUGS (2)
  1. FORSTEO [Suspect]
     Indication: OSTEOPOROSIS
     Dosage: 20 ug, qd
     Route: 058
     Dates: start: 20120130, end: 20120420
  2. CALCIUM WITH VITAMIN D [Concomitant]

REACTIONS (2)
  - Tonsil cancer [Fatal]
  - Metastatic neoplasm [Fatal]
